FAERS Safety Report 23301512 (Version 1)
Quarter: 2023Q4

REPORT INFORMATION
  Report Type: Spontaneous
  Country: PH (occurrence: PH)
  Receive Date: 20231215
  Receipt Date: 20231215
  Transmission Date: 20240110
  Serious: Yes (Other)
  Sender: FDA-Public Use
  Company Number: PH-OTSUKA-2023_023762

PATIENT
  Age: 60 Year
  Sex: Female

DRUGS (5)
  1. REXULTI [Suspect]
     Active Substance: BREXPIPRAZOLE
     Indication: Schizophrenia
     Dosage: 1 MG, QD (FOR 4 DAYS)
     Route: 048
     Dates: start: 20230626
  2. REXULTI [Suspect]
     Active Substance: BREXPIPRAZOLE
     Indication: Psychotic disorder
     Dosage: 2 MG, QD
     Route: 048
     Dates: end: 20230824
  3. REXULTI [Suspect]
     Active Substance: BREXPIPRAZOLE
     Dosage: 2 MG, QD (1/2 OF 4 MG TABLET)
     Route: 048
     Dates: start: 20230825, end: 20230830
  4. REXULTI [Suspect]
     Active Substance: BREXPIPRAZOLE
     Dosage: 2 MG, QD (FOR ATLEAST 10 DAYS)
     Route: 048
  5. REXULTI [Suspect]
     Active Substance: BREXPIPRAZOLE
     Dosage: 2 MG, QD (1/2 OF 4 MG TABLET)
     Route: 048

REACTIONS (13)
  - Hallucination, auditory [Recovering/Resolving]
  - Periorbital oedema [Recovering/Resolving]
  - Rheumatic disorder [Recovering/Resolving]
  - Peripheral swelling [Recovering/Resolving]
  - Joint swelling [Recovering/Resolving]
  - Oedema [Recovering/Resolving]
  - Oedema peripheral [Recovering/Resolving]
  - Eyelid oedema [Recovering/Resolving]
  - Adverse event [Recovering/Resolving]
  - Arthralgia [Recovering/Resolving]
  - Swelling face [Recovering/Resolving]
  - Hypersensitivity [Recovering/Resolving]
  - Product use in unapproved indication [Unknown]

NARRATIVE: CASE EVENT DATE: 20230626
